FAERS Safety Report 6073841-5 (Version None)
Quarter: 2009Q1

REPORT INFORMATION
  Report Type: 
  Country: None (occurrence: None)
  Receive Date: 20090209
  Receipt Date: 20090209
  Transmission Date: 20090719
  Serious: Yes (Other)
  Sender: FDA-Public Use
  Company Number: None

PATIENT
  Age: 17 Year
  Sex: Female
  Weight: 99.7913 kg

DRUGS (1)
  1. XOLAIR [Suspect]
     Indication: ASTHMA
     Dosage: 300 EVERY TWO WEEKS IV
     Route: 042
     Dates: start: 20090130, end: 20090130

REACTIONS (2)
  - BRONCHOSPASM [None]
  - COUGH [None]
